FAERS Safety Report 22381750 (Version 1)
Quarter: 2023Q2

REPORT INFORMATION
  Report Type: Spontaneous
  Country: US (occurrence: US)
  Receive Date: 20230530
  Receipt Date: 20230530
  Transmission Date: 20230721
  Serious: Yes (Other)
  Sender: FDA-Public Use
  Company Number: US-STRIDES ARCOLAB LIMITED-2023SP003997

PATIENT
  Age: 32 Year
  Sex: Female

DRUGS (5)
  1. METHOTREXATE [Suspect]
     Active Substance: METHOTREXATE
     Indication: Mucous membrane pemphigoid
     Dosage: 15 MILLIGRAM, ONCE A WEEK
     Route: 065
  2. PREDNISOLONE [Suspect]
     Active Substance: PREDNISOLONE
     Indication: Mucous membrane pemphigoid
     Dosage: 20 MILLIGRAM PER DAY
     Route: 065
  3. PREDNISOLONE [Suspect]
     Active Substance: PREDNISOLONE
     Dosage: 40 MILLIGRAM DAILY (TAPERED THEREAFTER)
     Route: 065
  4. PREDNISOLONE [Suspect]
     Active Substance: PREDNISOLONE
     Dosage: UNK, TAPERED THEREAFTER
     Route: 065
  5. DAPSONE [Suspect]
     Active Substance: DAPSONE
     Indication: Mucous membrane pemphigoid
     Dosage: 100 MILLIGRAM PER DAY
     Route: 065

REACTIONS (3)
  - Drug ineffective [Unknown]
  - Condition aggravated [Unknown]
  - Off label use [Unknown]
